FAERS Safety Report 5520521-8 (Version None)
Quarter: 2007Q4

REPORT INFORMATION
  Report Type: 
  Country: None (occurrence: None)
  Receive Date: 20071119
  Receipt Date: 20071106
  Transmission Date: 20080405
  Serious: Yes (Other)
  Sender: FDA-Public Use
  Company Number: CA-PFIZER INC-2007092548

PATIENT
  Sex: Female
  Weight: 68 kg

DRUGS (3)
  1. CHAMPIX [Suspect]
     Indication: SMOKING CESSATION THERAPY
     Route: 048
     Dates: start: 20070928, end: 20071028
  2. THYROID TAB [Concomitant]
     Route: 048
  3. VITAMINS [Concomitant]
     Route: 048

REACTIONS (28)
  - ABDOMINAL PAIN UPPER [None]
  - ABNORMAL BEHAVIOUR [None]
  - BLOOD DISORDER [None]
  - BLOOD GLUCOSE INCREASED [None]
  - CONTUSION [None]
  - DIZZINESS [None]
  - ERYTHEMA [None]
  - FEAR [None]
  - FEELING ABNORMAL [None]
  - HEADACHE [None]
  - HYPERSENSITIVITY [None]
  - HYPERTENSION [None]
  - IMPAIRED DRIVING ABILITY [None]
  - IMPAIRED WORK ABILITY [None]
  - LIP EXFOLIATION [None]
  - LIP SWELLING [None]
  - LOCAL SWELLING [None]
  - NAUSEA [None]
  - OEDEMA PERIPHERAL [None]
  - PERSONALITY DISORDER [None]
  - RASH [None]
  - SKIN DISCOLOURATION [None]
  - SKIN EXFOLIATION [None]
  - SKIN HAEMORRHAGE [None]
  - SLEEP DISORDER [None]
  - SWELLING FACE [None]
  - TREMOR [None]
  - URTICARIA [None]
